FAERS Safety Report 5361360-0 (Version None)
Quarter: 2007Q2

REPORT INFORMATION
  Report Type: 
  Country: None (occurrence: None)
  Receive Date: 20070612
  Receipt Date: 20070604
  Transmission Date: 20071010
  Serious: Yes (Hospitalization)
  Sender: FDA-Public Use
  Company Number: 2007JP002108

PATIENT
  Age: 78 Year
  Sex: Female
  Weight: 45 kg

DRUGS (6)
  1. VESICARE [Suspect]
     Indication: HYPERTONIC BLADDER
     Dosage: 5MG, UID/QD, ORAL
     Route: 048
     Dates: start: 20070317
  2. NORVASC [Concomitant]
  3. DIOVAN [Concomitant]
  4. PRORENAL (LIMAPROST) TABLET [Concomitant]
  5. JUVELA NICOTINATE (TOCOPHERYL NICONTINATE) CAPSULE [Concomitant]
  6. EPADEL (ETHYL ICOSAPENATE) CAPSULE, 600 MG [Concomitant]

REACTIONS (1)
  - PYELONEPHRITIS ACUTE [None]
